FAERS Safety Report 4578696-3 (Version None)
Quarter: 2005Q1

REPORT INFORMATION
  Report Type: 
  Country: None (occurrence: None)
  Receive Date: 20050211
  Receipt Date: 20041202
  Transmission Date: 20050727
  Serious: Yes (Death, Life-Threatening)
  Sender: FDA-Public Use
  Company Number: JP-ROCHE-388332

PATIENT
  Age: 50 Year
  Sex: Female

DRUGS (11)
  1. ROCEPHIN [Suspect]
     Indication: PNEUMONIA
     Route: 042
     Dates: start: 20041118, end: 20041120
  2. DALACIN [Concomitant]
     Indication: DRUG USE FOR UNKNOWN INDICATION
     Dosage: NOTE 1-2GM.
     Route: 041
     Dates: start: 20041119, end: 20041121
  3. DEPAKENE [Concomitant]
     Route: 048
  4. VICCILLIN [Concomitant]
     Dosage: NOTE 2-4 GM.
     Route: 041
     Dates: start: 20041120, end: 20041121
  5. VANCOMYCIN [Concomitant]
     Dosage: THERAPY DATES 21-22 NOV 04 AND 02 DEC TO DEC 2004.
     Route: 041
     Dates: start: 20041121, end: 20041215
  6. MINOCYCLINE HYDROCHLORIDE [Concomitant]
     Dosage: TRADE NAME REPORTED AS MINOPEN.
     Route: 041
     Dates: start: 20041121, end: 20041122
  7. CIPROXAN [Concomitant]
     Route: 041
     Dates: start: 20041122, end: 20041202
  8. SOLU-MEDROL [Concomitant]
     Dosage: NOTE 0.5-1GM.
     Route: 041
     Dates: start: 20041127, end: 20041204
  9. FUNGUARD [Concomitant]
     Dosage: NOTE 150-300 MG.
     Route: 041
     Dates: start: 20041128, end: 20041215
  10. MEROPEN [Concomitant]
     Route: 041
     Dates: start: 20041207, end: 20041215
  11. BACTRAMIN [Concomitant]
     Route: 041
     Dates: start: 20041208, end: 20041215

REACTIONS (7)
  - DISSEMINATED INTRAVASCULAR COAGULATION [None]
  - LUNG INJURY [None]
  - MULTI-ORGAN FAILURE [None]
  - OLIGURIA [None]
  - PNEUMONITIS [None]
  - PNEUMOTHORAX [None]
  - STAPHYLOCOCCAL INFECTION [None]
